FAERS Safety Report 4584933-1 (Version None)
Quarter: 2005Q1

REPORT INFORMATION
  Report Type: 
  Country: None (occurrence: None)
  Receive Date: 20050217
  Receipt Date: 20041116
  Transmission Date: 20050727
  Serious: No
  Sender: FDA-Public Use
  Company Number: US-GLAXOSMITHKLINE-A0534117A

PATIENT
  Age: 37 Year
  Sex: Female

DRUGS (3)
  1. WELLBUTRIN XL [Suspect]
     Indication: DEPRESSION
     Dosage: 300MG PER DAY
     Route: 048
     Dates: start: 20040915, end: 20041116
  2. ALLEGRA [Concomitant]
  3. NEXIUM [Concomitant]

REACTIONS (6)
  - DYSPNOEA [None]
  - HYPERTENSION [None]
  - INSOMNIA [None]
  - TACHYCARDIA [None]
  - TINNITUS [None]
  - WEIGHT DECREASED [None]
